FAERS Safety Report 24213775 (Version 3)
Quarter: 2025Q3

REPORT INFORMATION
  Report Type: Report from Study
  Country: CA (occurrence: CA)
  Receive Date: 20240815
  Receipt Date: 20250918
  Transmission Date: 20251021
  Serious: Yes (Other)
  Sender: TAKEDA
  Company Number: CA-TAKEDA-2024TUS069127

PATIENT
  Sex: Female

DRUGS (11)
  1. VEDOLIZUMAB [Suspect]
     Active Substance: VEDOLIZUMAB
     Indication: Colitis ulcerative
  2. VEDOLIZUMAB [Suspect]
     Active Substance: VEDOLIZUMAB
  3. VEDOLIZUMAB [Suspect]
     Active Substance: VEDOLIZUMAB
  4. PREDNISONE [Suspect]
     Active Substance: PREDNISONE
     Indication: Product used for unknown indication
  5. CORTISONE [Suspect]
     Active Substance: CORTISONE
     Indication: Product used for unknown indication
  6. PENTASA [Concomitant]
     Active Substance: MESALAMINE
  7. PENTASA [Concomitant]
     Active Substance: MESALAMINE
  8. NORVASC [Concomitant]
     Active Substance: AMLODIPINE BESYLATE
  9. EUCERIN [Concomitant]
     Active Substance: ENSULIZOLE\EUCERIN\OCTINOXATE\OCTISALATE\TITANIUM DIOXIDE\ZINC OXIDE
     Route: 061
  10. Uricine [Concomitant]
     Route: 061
  11. UCERIS [Concomitant]
     Active Substance: BUDESONIDE

REACTIONS (18)
  - Cataract [Unknown]
  - Proctalgia [Recovering/Resolving]
  - Faeces soft [Recovering/Resolving]
  - Infusion site pain [Recovering/Resolving]
  - Fatigue [Recovered/Resolved]
  - Skin atrophy [Unknown]
  - Dry skin [Unknown]
  - Skin plaque [Unknown]
  - Infusion site bruising [Unknown]
  - Hyperkeratosis [Not Recovered/Not Resolved]
  - Abdominal discomfort [Recovering/Resolving]
  - Dyschezia [Recovering/Resolving]
  - Poor quality sleep [Unknown]
  - Stress [Unknown]
  - Vision blurred [Recovering/Resolving]
  - Blood pressure increased [Recovering/Resolving]
  - Erythema [Unknown]
  - Headache [Recovered/Resolved]
